FAERS Safety Report 10242808 (Version 1)
Quarter: 2014Q2

REPORT INFORMATION
  Report Type: Spontaneous
  Country: US (occurrence: US)
  Receive Date: 20140618
  Receipt Date: 20140618
  Transmission Date: 20141212
  Serious: No
  Sender: FDA-Public Use
  Company Number: US-009507513-1405USA011099

PATIENT
  Sex: Male
  Weight: 84.81 kg

DRUGS (5)
  1. PEGINTRON [Suspect]
     Indication: HEPATITIS C
     Dosage: 150 MICROGRAM, QW, REDIPEN
     Route: 058
  2. RIBAPAK [Suspect]
     Dosage: 1200/DAY
  3. ZOLOFT [Concomitant]
  4. METHADONE HYDROCHLORIDE [Concomitant]
  5. SOVALDI [Concomitant]

REACTIONS (1)
  - Dyspnoea [Unknown]
